FAERS Safety Report 16405984 (Version 8)
Quarter: 2021Q3

REPORT INFORMATION
  Report Type: Report from Study
  Country: US (occurrence: US)
  Receive Date: 20190607
  Receipt Date: 20210819
  Transmission Date: 20211014
  Serious: Yes (Hospitalization)
  Sender: FDA-Public Use
  Company Number: PHEH2019US024056

PATIENT
  Age: 38 Year
  Sex: Female
  Weight: 96.15 kg

DRUGS (5)
  1. OPSUMIT [Concomitant]
     Active Substance: MACITENTAN
     Indication: PRODUCT USED FOR UNKNOWN INDICATION
     Dosage: UNK
     Route: 065
  2. XARELTO [Concomitant]
     Active Substance: RIVAROXABAN
     Indication: PRODUCT USED FOR UNKNOWN INDICATION
     Dosage: UNK
     Route: 065
  3. TREPROSTINIL. [Suspect]
     Active Substance: TREPROSTINIL
     Indication: PULMONARY ARTERIAL HYPERTENSION
     Dosage: 96 NG/KG/MIN, CONT
     Route: 042
     Dates: start: 20190424
  4. TREPROSTINIL. [Suspect]
     Active Substance: TREPROSTINIL
     Dosage: 100 NG/KG/MIN, CONT
     Route: 042
  5. TREPROSTINIL. [Suspect]
     Active Substance: TREPROSTINIL
     Dosage: 100 NG/KG/MIN, CONT
     Route: 042

REACTIONS (9)
  - Infusion site rash [Unknown]
  - Infusion site irritation [Unknown]
  - Expired product administered [Unknown]
  - Infusion site pruritus [Unknown]
  - Injection site vesicles [Unknown]
  - Vascular device infection [Unknown]
  - Catheter site vesicles [Unknown]
  - Skin irritation [Unknown]
  - Catheter site infection [Unknown]

NARRATIVE: CASE EVENT DATE: 202005
